FAERS Safety Report 5075940-3 (Version None)
Quarter: 2006Q3

REPORT INFORMATION
  Report Type: 
  Country: None (occurrence: None)
  Receive Date: 20060809
  Receipt Date: 20060414
  Transmission Date: 20061208
  Serious: Yes (Other)
  Sender: FDA-Public Use
  Company Number: US-AMGEN-US176879

PATIENT
  Sex: Male
  Weight: 96.3 kg

DRUGS (3)
  1. PROCRIT [Suspect]
     Indication: RENAL FAILURE CHRONIC
  2. ARANESP [Suspect]
     Indication: RENAL FAILURE CHRONIC
     Route: 058
     Dates: start: 20050801, end: 20050913
  3. ALLOPURINOL [Concomitant]

REACTIONS (1)
  - APLASIA PURE RED CELL [None]
